FAERS Safety Report 10270267 (Version 1)
Quarter: 2014Q2

REPORT INFORMATION
  Report Type: Spontaneous
  Country: JP (occurrence: None)
  Receive Date: 20140626
  Receipt Date: 20140626
  Transmission Date: 20141212
  Serious: Yes (Hospitalization)
  Sender: FDA-Public Use
  Company Number: 2014TJP006979

PATIENT
  Sex: Female

DRUGS (1)
  1. TAKEPRON OD TABLETS 15 (LANSOPRAZOLE) ORODISPERSIBLE TABLET, 15 MG [Suspect]
     Indication: PRODUCT USED FOR UNKNOWN INDICATION
     Route: 048

REACTIONS (2)
  - Colitis microscopic [None]
  - Diarrhoea [None]
